FAERS Safety Report 25042589 (Version 2)
Quarter: 2025Q1

REPORT INFORMATION
  Report Type: Spontaneous
  Country: CN (occurrence: CN)
  Receive Date: 20250305
  Receipt Date: 20250320
  Transmission Date: 20250408
  Serious: Yes (Hospitalization, Other)
  Sender: IPSEN BIOPHARMACEUTICALS, INC.
  Company Number: CN-IPSEN Group, Research and Development-2025-05051

PATIENT
  Age: 34 Year
  Sex: Female
  Weight: 62 kg

DRUGS (5)
  1. LANREOTIDE ACETATE [Suspect]
     Active Substance: LANREOTIDE ACETATE
     Indication: Acromegaly
     Route: 058
     Dates: start: 202205, end: 202212
  2. OCTREOTIDE [Concomitant]
     Active Substance: OCTREOTIDE
     Dates: start: 202301
  3. OCTREOTIDE [Concomitant]
     Active Substance: OCTREOTIDE
     Dates: start: 202402
  4. OCTREOTIDE [Concomitant]
     Active Substance: OCTREOTIDE
     Dates: start: 202405
  5. CABERGOLINE [Concomitant]
     Active Substance: CABERGOLINE
     Dosage: THREE PILLS A WEEK
     Dates: start: 202408

REACTIONS (2)
  - Exophthalmos [Recovered/Resolved]
  - Drug ineffective [Unknown]

NARRATIVE: CASE EVENT DATE: 20220501
